FAERS Safety Report 5239357-0 (Version None)
Quarter: 2007Q1

REPORT INFORMATION
  Report Type: 
  Country: None (occurrence: None)
  Receive Date: 20070216
  Receipt Date: 20070207
  Transmission Date: 20070707
  Serious: Yes (Other)
  Sender: FDA-Public Use
  Company Number: US-JNJFOC-20061203030

PATIENT
  Sex: Female
  Weight: 63.5 kg

DRUGS (3)
  1. REMICADE [Suspect]
     Dates: start: 20060301
  2. REMICADE [Suspect]
     Dates: start: 20060301
  3. REMICADE [Suspect]
     Indication: CROHN'S DISEASE
     Dates: start: 20060301

REACTIONS (3)
  - ARTHRITIS [None]
  - HYPOTENSION [None]
  - LOSS OF CONSCIOUSNESS [None]
